FAERS Safety Report 21123900 (Version 1)
Quarter: 2022Q3

REPORT INFORMATION
  Report Type: Spontaneous
  Country: US (occurrence: US)
  Receive Date: 20220725
  Receipt Date: 20220725
  Transmission Date: 20221027
  Serious: No
  Sender: FDA-Public Use
  Company Number: US-SA-SAC20220719000369

PATIENT
  Age: 70 Year
  Sex: Female

DRUGS (2)
  1. DUPIXENT [Suspect]
     Active Substance: DUPILUMAB
     Dosage: 300 MG
     Route: 058
     Dates: start: 202204
  2. DUPIXENT [Suspect]
     Active Substance: DUPILUMAB
     Dosage: 300MG
     Route: 058
     Dates: start: 2022

REACTIONS (4)
  - Lacrimation increased [Unknown]
  - Burning sensation [Unknown]
  - Pruritus [Unknown]
  - Arthralgia [Recovered/Resolved]

NARRATIVE: CASE EVENT DATE: 20220401
